FAERS Safety Report 7356587-2 (Version None)
Quarter: 2011Q1

REPORT INFORMATION
  Report Type: 
  Country: None (occurrence: None)
  Receive Date: 20110316
  Receipt Date: 20110303
  Transmission Date: 20110831
  Serious: Yes (Other)
  Sender: FDA-Public Use
  Company Number: PHFR2010GB06086

PATIENT
  Sex: Male

DRUGS (5)
  1. SIMVASTATIN [Concomitant]
     Dosage: 40 MG/DAY
     Route: 048
  2. EZETIMIBE [Concomitant]
     Dosage: 10 MG/DAY
     Route: 048
  3. CLOZARIL [Suspect]
     Indication: SCHIZOPHRENIA
     Dosage: 275 MG NOCTE
     Route: 048
     Dates: start: 20020112, end: 20101228
  4. OMEPRAZOLE [Concomitant]
     Indication: DYSPEPSIA
     Dosage: 40 MG/DAY
     Route: 048
  5. PAROXETINE [Concomitant]
     Indication: ANXIETY
     Dosage: 40 MG/DAY
     Route: 048

REACTIONS (3)
  - WHITE BLOOD CELL COUNT DECREASED [None]
  - NEUTROPHIL COUNT DECREASED [None]
  - NASOPHARYNGITIS [None]
